FAERS Safety Report 13973113 (Version 1)
Quarter: 2017Q3

REPORT INFORMATION
  Report Type: Spontaneous
  Country: US (occurrence: None)
  Receive Date: 20170914
  Receipt Date: 20170914
  Transmission Date: 20171128
  Serious: Yes (Other)
  Sender: FDA-Public Use
  Company Number: None

PATIENT
  Age: 39 Year
  Sex: Female

DRUGS (17)
  1. TRACLEER [Suspect]
     Active Substance: BOSENTAN
     Indication: PULMONARY ARTERIAL HYPERTENSION
     Route: 048
     Dates: start: 201604
  2. HYDROMORPHONE [Concomitant]
     Active Substance: HYDROMORPHONE
  3. SILDENAFIL. [Concomitant]
     Active Substance: SILDENAFIL
  4. CALCIUM CARBONATE. [Concomitant]
     Active Substance: CALCIUM CARBONATE
  5. LORATADINE. [Concomitant]
     Active Substance: LORATADINE
  6. MULTIVITAMIN [Concomitant]
     Active Substance: VITAMINS
  7. POTASSIUM CHLORIDE. [Concomitant]
     Active Substance: POTASSIUM CHLORIDE
  8. MAGNESIUM OXIDE. [Concomitant]
     Active Substance: MAGNESIUM OXIDE
  9. FUROSEMIDE. [Concomitant]
     Active Substance: FUROSEMIDE
  10. HALOPERIDOL. [Concomitant]
     Active Substance: HALOPERIDOL
  11. RANITIDINE. [Concomitant]
     Active Substance: RANITIDINE
  12. SUCRALFATE. [Concomitant]
     Active Substance: SUCRALFATE
  13. OYSTER SHELL CALCIUM [Concomitant]
     Active Substance: CALCIUM
  14. PANTOPRAZOLE [Concomitant]
     Active Substance: PANTOPRAZOLE
  15. SPIRONOLACTONE. [Concomitant]
     Active Substance: SPIRONOLACTONE
  16. METOLAZONE. [Concomitant]
     Active Substance: METOLAZONE
  17. LORAZEPAM. [Concomitant]
     Active Substance: LORAZEPAM

REACTIONS (3)
  - Chest pain [None]
  - Drug dependence [None]
  - Back pain [None]

NARRATIVE: CASE EVENT DATE: 20170912
